FAERS Safety Report 8308324-2 (Version None)
Quarter: 2012Q2

REPORT INFORMATION
  Report Type: 
  Country: None (occurrence: None)
  Receive Date: 20120424
  Receipt Date: 20090903
  Transmission Date: 20120825
  Serious: Yes (Disabling)
  Sender: FDA-Public Use
  Company Number: US-TEVA-2009008396

PATIENT
  Sex: Female
  Weight: 70.37 kg

DRUGS (8)
  1. PROVIGIL [Suspect]
     Indication: NARCOLEPSY
     Dosage: 200 MILLIGRAM;
     Route: 048
     Dates: start: 20090501, end: 20090704
  2. LYRICA [Concomitant]
     Indication: NEUROPATHY PERIPHERAL
     Dosage: 600 MILLIGRAM;
     Route: 048
     Dates: start: 20060101
  3. ULTRAM [Concomitant]
     Indication: PAIN
     Route: 048
     Dates: start: 20070101
  4. TOPAMAX [Concomitant]
     Indication: MIGRAINE
     Route: 048
     Dates: start: 20070101
  5. VENTOLIN [Concomitant]
     Indication: ASTHMA
     Route: 055
     Dates: start: 20010101
  6. ZYRTEC [Concomitant]
     Indication: HYPERSENSITIVITY
     Route: 048
  7. ZYRTEC [Concomitant]
     Indication: MIGRAINE
  8. EXCEDRIN (MIGRAINE) [Concomitant]
     Indication: MIGRAINE
     Route: 048

REACTIONS (3)
  - MIGRAINE [None]
  - URINE ODOUR ABNORMAL [None]
  - VOMITING [None]
